FAERS Safety Report 8905025 (Version 17)
Quarter: 2014Q3

REPORT INFORMATION
  Report Type: Spontaneous
  Country: US (occurrence: US)
  Receive Date: 20121112
  Receipt Date: 20140828
  Transmission Date: 20150326
  Serious: Yes (Other)
  Sender: FDA-Public Use
  Company Number: PHEH2012US022239

PATIENT
  Sex: Male

DRUGS (12)
  1. ZOLADEX [Concomitant]
     Active Substance: GOSERELIN ACETATE
  2. ARANESP [Concomitant]
     Active Substance: DARBEPOETIN ALFA
  3. AREDIA [Suspect]
     Active Substance: PAMIDRONATE DISODIUM
     Dosage: 90 MG, Q28D
     Route: 042
  4. LIPITOR [Concomitant]
     Active Substance: ATORVASTATIN CALCIUM
  5. EFFEXOR [Concomitant]
     Active Substance: VENLAFAXINE HYDROCHLORIDE
  6. TRAVATAN [Concomitant]
     Active Substance: TRAVOPROST
  7. PERCOCET [Concomitant]
     Active Substance: ACETAMINOPHEN\OXYCODONE HYDROCHLORIDE
  8. NEXIUM [Concomitant]
     Active Substance: ESOMEPRAZOLE MAGNESIUM
  9. PROTONIX [Concomitant]
     Active Substance: PANTOPRAZOLE SODIUM
  10. ZOMETA [Suspect]
     Active Substance: ZOLEDRONIC ACID
     Indication: PROSTATE CANCER
     Dosage: UNK UKN, UNK
     Route: 041
  11. LUPRON [Concomitant]
     Active Substance: LEUPROLIDE ACETATE
  12. METOPROLOL [Concomitant]
     Active Substance: METOPROLOL

REACTIONS (123)
  - Osteonecrosis of jaw [Unknown]
  - Anxiety [Unknown]
  - Loose tooth [Unknown]
  - Heart rate irregular [Unknown]
  - Hyperlipidaemia [Unknown]
  - Radiation skin injury [Unknown]
  - Bone pain [Unknown]
  - Dysarthria [Unknown]
  - Ear pruritus [Unknown]
  - Herpes zoster [Unknown]
  - Confusional state [Unknown]
  - Aphasia [Unknown]
  - Blood disorder [Unknown]
  - Aphagia [Unknown]
  - Back pain [Unknown]
  - Sunburn [Unknown]
  - Deformity [Unknown]
  - Physical disability [Unknown]
  - Large intestine polyp [Unknown]
  - Osteoarthritis [Unknown]
  - Exposed bone in jaw [Unknown]
  - Prostate cancer metastatic [Unknown]
  - Rib fracture [Unknown]
  - VIIth nerve paralysis [Unknown]
  - Syncope [Unknown]
  - Cerebral atrophy [Unknown]
  - Cerebral small vessel ischaemic disease [Unknown]
  - Vascular dementia [Unknown]
  - Left atrial dilatation [Unknown]
  - Liver disorder [Unknown]
  - Fatigue [Unknown]
  - Metastases to bone [Unknown]
  - Vertebral foraminal stenosis [Unknown]
  - Intervertebral disc protrusion [Unknown]
  - Hypertension [Unknown]
  - Haemorrhoids [Unknown]
  - Pulmonary mass [Unknown]
  - Vertebral osteophyte [Unknown]
  - Dyspnoea [Unknown]
  - Chronic gastritis [Unknown]
  - Primary sequestrum [Unknown]
  - Osteolysis [Unknown]
  - Sleep apnoea syndrome [Unknown]
  - Tooth discolouration [Unknown]
  - Metastases to bone marrow [Unknown]
  - Constipation [Unknown]
  - Cough [Unknown]
  - Metastases to spine [Unknown]
  - Cataract [Unknown]
  - Purulence [Unknown]
  - Renal failure chronic [Unknown]
  - Cardiac disorder [Unknown]
  - Bronchitis [Unknown]
  - Encephalomalacia [Unknown]
  - Ischaemic cerebral infarction [Unknown]
  - Cerebral artery occlusion [Unknown]
  - Facial paresis [Unknown]
  - Cerebral arteriosclerosis [Unknown]
  - Basal cell carcinoma [Unknown]
  - Actinic keratosis [Unknown]
  - Squamous cell carcinoma [Unknown]
  - Photodermatosis [Unknown]
  - Mental disorder [Unknown]
  - Scab [Unknown]
  - Musculoskeletal pain [Unknown]
  - Musculoskeletal chest pain [Unknown]
  - Infection [Unknown]
  - Injury [Unknown]
  - Spinal cord compression [Unknown]
  - Bone loss [Unknown]
  - Anaemia [Unknown]
  - Large intestine benign neoplasm [Unknown]
  - Aortic valve disease [Unknown]
  - Memory impairment [Unknown]
  - Pathological fracture [Unknown]
  - Jaw fracture [Unknown]
  - Balance disorder [Unknown]
  - Cancer pain [Unknown]
  - Abdominal pain [Unknown]
  - Eye pain [Unknown]
  - Dermatitis atopic [Unknown]
  - Emotional distress [Unknown]
  - Lordosis [Unknown]
  - Intervertebral disc degeneration [Unknown]
  - Swelling face [Unknown]
  - Cholesteatoma [Unknown]
  - Hypoaesthesia [Unknown]
  - Cerebral artery stenosis [Unknown]
  - Papule [Unknown]
  - Depression [Unknown]
  - Headache [Unknown]
  - Nausea [Unknown]
  - Aortic arteriosclerosis [Unknown]
  - Vascular calcification [Unknown]
  - Hiatus hernia [Unknown]
  - Stomatitis [Unknown]
  - Rotator cuff syndrome [Unknown]
  - Cerebrovascular accident [Unknown]
  - Contusion [Unknown]
  - Ear pain [Unknown]
  - Mental status changes [Unknown]
  - Aortic valve sclerosis [Unknown]
  - Respiratory tract congestion [Unknown]
  - Second primary malignancy [Unknown]
  - Erythema [Unknown]
  - Gastrooesophageal reflux disease [Unknown]
  - Abscess jaw [Unknown]
  - Asthenia [Unknown]
  - Pain [Unknown]
  - Spinal osteoarthritis [Unknown]
  - Diverticulum intestinal [Unknown]
  - Kyphosis [Unknown]
  - Coronary artery disease [Unknown]
  - Tobacco abuse [Unknown]
  - Osteosclerosis [Unknown]
  - Endocrine disorder [Unknown]
  - Tooth loss [Unknown]
  - Mobility decreased [Unknown]
  - Hot flush [Unknown]
  - Dyspepsia [Unknown]
  - Lentigo [Unknown]
  - Arthralgia [Unknown]
  - Decreased appetite [Unknown]
